FAERS Safety Report 13438262 (Version 1)
Quarter: 2017Q2

REPORT INFORMATION
  Report Type: Spontaneous
  Country: BR (occurrence: BR)
  Receive Date: 20170413
  Receipt Date: 20170413
  Transmission Date: 20170830
  Serious: Yes (Other)
  Sender: FDA-Public Use
  Company Number: BR-BAYER-2017-066664

PATIENT
  Age: 68 Year

DRUGS (1)
  1. NEXAVAR [Suspect]
     Active Substance: SORAFENIB
     Dosage: 800 MG, UNK

REACTIONS (9)
  - Erythema [None]
  - Myelodysplastic syndrome [None]
  - Palmar-plantar erythrodysaesthesia syndrome [None]
  - Weight decreased [None]
  - Pancytopenia [None]
  - Diarrhoea [None]
  - Fatigue [None]
  - Weight increased [None]
  - Pallor [None]
